FAERS Safety Report 20074484 (Version 1)
Quarter: 2021Q4

REPORT INFORMATION
  Report Type: Spontaneous
  Country: US (occurrence: None)
  Receive Date: 20211115
  Receipt Date: 20211115
  Transmission Date: 20220304
  Serious: Yes (Other)
  Sender: FDA-Public Use
  Company Number: None

PATIENT
  Age: 51 Year
  Sex: Male
  Weight: 78.75 kg

DRUGS (4)
  1. DUPILUMAB [Suspect]
     Active Substance: DUPILUMAB
     Indication: Dermatitis atopic
     Dosage: OTHER FREQUENCY : ONCE;?
     Route: 058
     Dates: start: 20211014, end: 20211014
  2. TRIAMCINOLONE ACETONIDE [Concomitant]
     Active Substance: TRIAMCINOLONE ACETONIDE
     Dates: start: 20211001
  3. KETOCONAZOLE [Concomitant]
     Active Substance: KETOCONAZOLE
     Dates: start: 20211001
  4. Cyanocobalamine 1000 mcg [Concomitant]
     Dates: start: 20210920

REACTIONS (3)
  - Peroneal nerve palsy [None]
  - Muscular weakness [None]
  - Sensory loss [None]

NARRATIVE: CASE EVENT DATE: 20211019
